FAERS Safety Report 5568898-1 (Version None)
Quarter: 2007Q4

REPORT INFORMATION
  Report Type: 
  Country: None (occurrence: None)
  Receive Date: 20071220
  Receipt Date: 20070307
  Transmission Date: 20080405
  Serious: No
  Sender: FDA-Public Use
  Company Number: A0642197A

PATIENT
  Sex: Male

DRUGS (4)
  1. AVODART [Suspect]
     Indication: BENIGN PROSTATIC HYPERPLASIA
     Dosage: .5MG PER DAY
     Route: 048
  2. FLOMAX [Concomitant]
  3. FELDENE [Concomitant]
  4. NASONEX [Concomitant]

REACTIONS (2)
  - MUSCULOSKELETAL PAIN [None]
  - URINARY HESITATION [None]
